FAERS Safety Report 14391327 (Version 1)
Quarter: 2018Q1

REPORT INFORMATION
  Report Type: Spontaneous
  Country: US (occurrence: US)
  Receive Date: 20180112
  Receipt Date: 20180112
  Transmission Date: 20180509
  Serious: No
  Sender: FDA-Public Use
  Company Number: None

PATIENT
  Age: 38 Year
  Sex: Female

DRUGS (1)
  1. GLATIRAMER 40MG MYLAN [Suspect]
     Active Substance: GLATIRAMER
     Indication: MULTIPLE SCLEROSIS
     Route: 058
     Dates: start: 20170718

REACTIONS (4)
  - Nausea [None]
  - Diarrhoea [None]
  - Vomiting [None]
  - Product substitution issue [None]

NARRATIVE: CASE EVENT DATE: 20180110
